FAERS Safety Report 8384275-2 (Version None)
Quarter: 2012Q2

REPORT INFORMATION
  Report Type: 
  Country: None (occurrence: None)
  Receive Date: 20120524
  Receipt Date: 20120515
  Transmission Date: 20120825
  Serious: Yes (Hospitalization)
  Sender: FDA-Public Use
  Company Number: GR-ASTRAZENECA-2012SE31525

PATIENT
  Age: 55 Year
  Sex: Male

DRUGS (4)
  1. B BLOCKER [Concomitant]
     Route: 048
  2. ASPIRIN [Concomitant]
     Indication: ACUTE CORONARY SYNDROME
     Route: 048
  3. STATIN [Concomitant]
     Indication: HYPERCHOLESTEROLAEMIA
     Route: 048
  4. BRILIQUE [Suspect]
     Indication: ACUTE CORONARY SYNDROME
     Route: 048
     Dates: start: 20120324, end: 20120513

REACTIONS (1)
  - GASTRIC HAEMORRHAGE [None]
